FAERS Safety Report 18459180 (Version 1)
Quarter: 2020Q4

REPORT INFORMATION
  Report Type: Spontaneous
  Country: CA (occurrence: CA)
  Receive Date: 20201103
  Receipt Date: 20201103
  Transmission Date: 20210114
  Serious: Yes (Hospitalization, Other)
  Sender: FDA-Public Use
  Company Number: CA-009507513-2010CAN012086

PATIENT
  Age: 75 Year
  Sex: Male

DRUGS (1)
  1. KEYTRUDA [Suspect]
     Active Substance: PEMBROLIZUMAB
     Dosage: UNK
     Dates: start: 2018, end: 2019

REACTIONS (4)
  - Myocarditis [Unknown]
  - Myocardial oedema [Unknown]
  - Ejection fraction decreased [Unknown]
  - Atrioventricular block [Unknown]

NARRATIVE: CASE EVENT DATE: 202002
